FAERS Safety Report 7875342-8 (Version None)
Quarter: 2011Q4

REPORT INFORMATION
  Report Type: 
  Country: None (occurrence: None)
  Receive Date: 20111031
  Receipt Date: 20111024
  Transmission Date: 20120403
  Serious: Yes (Hospitalization, Disabling)
  Sender: FDA-Public Use
  Company Number: US-GLAXOSMITHKLINE-A0933584A

PATIENT
  Age: 7 Year
  Sex: Male

DRUGS (9)
  1. MUCINEX [Concomitant]
  2. ADVAIR DISKUS 100/50 [Suspect]
     Dosage: 2PUFF TWICE PER DAY
     Route: 055
     Dates: start: 20070202, end: 20110101
  3. ATENOLOL [Concomitant]
  4. ADVAIR DISKUS 100/50 [Suspect]
     Indication: ASTHMA
     Dosage: 2PUFF TWICE PER DAY
     Route: 055
     Dates: start: 20090731
  5. TEGRETOL [Concomitant]
  6. XOPENEX [Concomitant]
  7. SINGULAIR [Concomitant]
  8. HYDROXYZINE [Concomitant]
  9. ALBUTEROL [Concomitant]

REACTIONS (4)
  - ASTHMA [None]
  - HYPOXIC-ISCHAEMIC ENCEPHALOPATHY [None]
  - CARDIO-RESPIRATORY ARREST [None]
  - PARALYSIS [None]
